FAERS Safety Report 8370773-4 (Version None)
Quarter: 2012Q2

REPORT INFORMATION
  Report Type: 
  Country: None (occurrence: None)
  Receive Date: 20120518
  Receipt Date: 20120514
  Transmission Date: 20120825
  Serious: Yes (Other)
  Sender: FDA-Public Use
  Company Number: FR-PFIZER INC-2012116618

PATIENT
  Sex: Male

DRUGS (2)
  1. TORISEL [Suspect]
     Indication: MANTLE CELL LYMPHOMA
     Dosage: 175 MG, CYCLIC, WEEKLY
  2. TORISEL [Suspect]
     Dosage: 75 MG, CYCLIC, WEEKLY

REACTIONS (1)
  - NEPHROPATHY TOXIC [None]
